FAERS Safety Report 22755173 (Version 2)
Quarter: 2024Q4

REPORT INFORMATION
  Report Type: Report from Study
  Country: US (occurrence: US)
  Receive Date: 20230727
  Receipt Date: 20241015
  Transmission Date: 20250115
  Serious: Yes (Disabling, Other)
  Sender: NOVARTIS
  Company Number: US-002147023-NVSC2023US163518

PATIENT
  Sex: Male

DRUGS (1)
  1. ENTRESTO [Suspect]
     Active Substance: SACUBITRIL\VALSARTAN
     Indication: Product used for unknown indication
     Dosage: UNK
     Route: 065

REACTIONS (6)
  - Vitreoretinal traction syndrome [Unknown]
  - Blindness [Unknown]
  - Hypoxia [Unknown]
  - Brain hypoxia [Unknown]
  - Ejection fraction decreased [Unknown]
  - Cardiac disorder [Unknown]
